FAERS Safety Report 14329346 (Version 1)
Quarter: 2017Q4

REPORT INFORMATION
  Report Type: Report from Study
  Country: US (occurrence: US)
  Receive Date: 20171227
  Receipt Date: 20171227
  Transmission Date: 20180321
  Serious: Yes (Other)
  Sender: FDA-Public Use
  Company Number: US-MYLANLABS-2017M1079251

PATIENT
  Age: 64 Year
  Sex: Female

DRUGS (5)
  1. BUPARLISIB [Suspect]
     Active Substance: BUPARLISIB HYDROCHLORIDE
     Dosage: 80MG/DAY
     Route: 048
  2. PACLITAXEL. [Suspect]
     Active Substance: PACLITAXEL
     Indication: ENDOMETRIAL CANCER
     Dosage: 200MG/M2 ON DAY 1 OF THE 21 DAY CYCLE
     Route: 042
  3. BUPARLISIB [Suspect]
     Active Substance: BUPARLISIB HYDROCHLORIDE
     Indication: ENDOMETRIAL CANCER
     Dosage: 60MG/DAY
     Route: 048
  4. CARBOPLATIN. [Suspect]
     Active Substance: CARBOPLATIN
     Indication: ENDOMETRIAL CANCER
     Dosage: AUC 6 ON DAY OF THE 21-DAY CYCLE
     Route: 042
  5. BUPARLISIB [Suspect]
     Active Substance: BUPARLISIB HYDROCHLORIDE
     Dosage: 100MG/DAY
     Route: 048

REACTIONS (4)
  - Anaemia [Unknown]
  - Alanine aminotransferase increased [Unknown]
  - Rash maculo-papular [Unknown]
  - Hyperglycaemia [Unknown]
